FAERS Safety Report 5601497-1 (Version None)
Quarter: 2008Q1

REPORT INFORMATION
  Report Type: 
  Country: None (occurrence: None)
  Receive Date: 20080124
  Receipt Date: 20070227
  Transmission Date: 20080703
  Serious: No
  Sender: FDA-Public Use
  Company Number: US-BAYER-200710212BCC

PATIENT
  Age: 23 Year
  Sex: Female
  Weight: 68 kg

DRUGS (1)
  1. ALEVE COLD AND SINUS [Suspect]
     Indication: NASOPHARYNGITIS
     Dosage: TOTAL DAILY DOSE: 440 MG  UNIT DOSE: 220 MG
     Route: 048
     Dates: start: 20070118

REACTIONS (2)
  - PALPITATIONS [None]
  - PARAESTHESIA [None]
